FAERS Safety Report 7256970-X (Version None)
Quarter: 2011Q1

REPORT INFORMATION
  Report Type: 
  Country: None (occurrence: None)
  Receive Date: 20110129
  Receipt Date: 20100726
  Transmission Date: 20110831
  Serious: No
  Sender: FDA-Public Use
  Company Number: US-ABBOTT-10P-163-0659732-00

PATIENT
  Age: 61 Year
  Sex: Female

DRUGS (4)
  1. XANAX [Concomitant]
     Indication: ANXIETY
  2. ATENOLOL [Concomitant]
     Indication: BLOOD PRESSURE
  3. HUMIRA [Suspect]
     Indication: RHEUMATOID ARTHRITIS
     Dates: start: 20050101
  4. LEXAPRO [Concomitant]
     Indication: DEPRESSION

REACTIONS (1)
  - ECCHYMOSIS [None]
